FAERS Safety Report 7517422-2 (Version None)
Quarter: 2011Q2

REPORT INFORMATION
  Report Type: 
  Country: None (occurrence: None)
  Receive Date: 20110601
  Receipt Date: 20110526
  Transmission Date: 20111010
  Serious: Yes (Hospitalization)
  Sender: FDA-Public Use
  Company Number: US-JNJFOC-20110512708

PATIENT
  Age: 59 Year
  Sex: Female
  Weight: 56.7 kg

DRUGS (3)
  1. VERAMYST NOS [Concomitant]
     Indication: MULTIPLE ALLERGIES
     Route: 065
     Dates: start: 20060101
  2. MOTRIN IB [Suspect]
     Indication: PAIN
     Route: 048
     Dates: start: 20110412, end: 20110412
  3. MOTRIN IB [Suspect]
     Route: 048

REACTIONS (4)
  - DIZZINESS [None]
  - LOSS OF CONSCIOUSNESS [None]
  - GASTRIC ULCER HAEMORRHAGE [None]
  - ANAEMIA [None]
